FAERS Safety Report 23871053 (Version 1)
Quarter: 2024Q2

REPORT INFORMATION
  Report Type: Report from Study
  Country: CO (occurrence: CO)
  Receive Date: 20240518
  Receipt Date: 20240518
  Transmission Date: 20240715
  Serious: Yes (Hospitalization, Other)
  Sender: FDA-Public Use
  Company Number: CO-ABBVIE-5765967

PATIENT
  Age: 42 Year
  Sex: Male
  Weight: 78 kg

DRUGS (3)
  1. SKYRIZI [Suspect]
     Active Substance: RISANKIZUMAB-RZAA
     Indication: Psoriasis
     Dosage: FORM STRENGTH: 150 MILLIGRAM
     Route: 058
     Dates: start: 20230710
  2. ACETAMINOPHEN [Concomitant]
     Active Substance: ACETAMINOPHEN
     Indication: Postoperative care
     Dosage: DISCONTINUED IN MAY 2024?FORM STRENGTH: 500 MILLIGRAM
     Route: 048
     Dates: start: 20240506
  3. IBUPROFEN [Concomitant]
     Active Substance: IBUPROFEN
     Indication: Postoperative care
     Dosage: DISCONTINUED IN MAY 2024?FORM STRENGTH: 500 MILLIGRAM
     Route: 048
     Dates: start: 20240506

REACTIONS (2)
  - Cholelithiasis [Unknown]
  - Abdominal pain [Not Recovered/Not Resolved]

NARRATIVE: CASE EVENT DATE: 20240501
